FAERS Safety Report 9657776 (Version 1)
Quarter: 2013Q4

REPORT INFORMATION
  Report Type: Spontaneous
  Country: IE (occurrence: None)
  Receive Date: 20131029
  Receipt Date: 20131029
  Transmission Date: 20140711
  Serious: Yes (Other)
  Sender: FDA-Public Use
  Company Number: 2013P1020258

PATIENT
  Age: 42 Year
  Sex: Female

DRUGS (1)
  1. OXYCODONE [Suspect]
     Indication: BACK PAIN

REACTIONS (2)
  - Toxicity to various agents [None]
  - Back pain [None]
